FAERS Safety Report 9888925 (Version 2)
Quarter: 2014Q1

REPORT INFORMATION
  Report Type: Spontaneous
  Country: DE (occurrence: DE)
  Receive Date: 20140211
  Receipt Date: 20140211
  Transmission Date: 20141002
  Serious: Yes (Other)
  Sender: FDA-Public Use
  Company Number: DE-UCBSA-107870

PATIENT
  Age: 57 Year
  Sex: Male

DRUGS (3)
  1. KEPPRA [Suspect]
     Indication: MYOCLONIC EPILEPSY
     Route: 048
     Dates: start: 201302, end: 2013
  2. KEPPRA [Suspect]
     Indication: MYOCLONIC EPILEPSY
     Dosage: DOSE REDUCED
     Route: 048
     Dates: start: 2013, end: 2013
  3. KEPPRA [Suspect]
     Indication: MYOCLONIC EPILEPSY
     Dosage: UNKNOWN DOSE(DOSE INCREASED)
     Route: 048
     Dates: start: 201309

REACTIONS (3)
  - Basal ganglia haemorrhage [Unknown]
  - Dysphemia [Unknown]
  - Disturbance in attention [Unknown]
